FAERS Safety Report 23702152 (Version 1)
Quarter: 2024Q2

REPORT INFORMATION
  Report Type: Spontaneous
  Country: US (occurrence: None)
  Receive Date: 20240403
  Receipt Date: 20240403
  Transmission Date: 20240716
  Serious: No
  Sender: FDA-Public Use
  Company Number: None

PATIENT
  Age: 7 Year
  Sex: Male

DRUGS (1)
  1. DUPIXENT [Suspect]
     Active Substance: DUPILUMAB
     Indication: Dermatitis atopic
     Dosage: OTHER FREQUENCY : Q2WEEKS;?
     Route: 058
     Dates: start: 20240129

REACTIONS (3)
  - Injection site rash [None]
  - Injection site pain [None]
  - Dry skin [None]

NARRATIVE: CASE EVENT DATE: 20240403
